FAERS Safety Report 5778494-9 (Version None)
Quarter: 2008Q2

REPORT INFORMATION
  Report Type: 
  Country: None (occurrence: None)
  Receive Date: 20080618
  Receipt Date: 20080618
  Transmission Date: 20081010
  Serious: Yes (Hospitalization)
  Sender: FDA-Public Use
  Company Number: None

PATIENT
  Age: 51 Year
  Sex: Male
  Weight: 132.2 kg

DRUGS (1)
  1. GUAIFENESIN [Suspect]
     Indication: COUGH

REACTIONS (2)
  - INCORRECT DOSE ADMINISTERED [None]
  - SYNCOPE [None]
